FAERS Safety Report 5525233-2 (Version None)
Quarter: 2007Q4

REPORT INFORMATION
  Report Type: 
  Country: None (occurrence: None)
  Receive Date: 20071126
  Receipt Date: 20071115
  Transmission Date: 20080405
  Serious: Yes (Other)
  Sender: FDA-Public Use
  Company Number: US-ROCHE-531909

PATIENT
  Age: 49 Year
  Sex: Female
  Weight: 90.7 kg

DRUGS (1)
  1. BONIVA [Suspect]
     Indication: OSTEOPOROSIS
     Route: 048
     Dates: start: 20071113, end: 20071113

REACTIONS (2)
  - RHABDOMYOLYSIS [None]
  - URINARY RETENTION [None]
